FAERS Safety Report 5607693-1 (Version None)
Quarter: 2008Q1

REPORT INFORMATION
  Report Type: 
  Country: None (occurrence: None)
  Receive Date: 20080130
  Receipt Date: 20080121
  Transmission Date: 20080703
  Serious: Yes (Life-Threatening)
  Sender: FDA-Public Use
  Company Number: JP-BAYER-200710969BYL

PATIENT
  Age: 84 Year
  Sex: Female

DRUGS (9)
  1. CIPROXAN-I.V. [Suspect]
     Indication: PNEUMONIA
     Dosage: TOTAL DAILY DOSE: 600 MG  UNIT DOSE: 300 MG
     Route: 041
     Dates: start: 20071024, end: 20071027
  2. SULPERAZON(SULBACTAM SODIUM AND CEFOPERAZONE SODIUM) [Concomitant]
     Dosage: TOTAL DAILY DOSE: 2 G
     Route: 042
     Dates: start: 20071027, end: 20071107
  3. TIENAM [Concomitant]
     Dosage: TOTAL DAILY DOSE: 1.0 G
     Route: 042
     Dates: start: 20071107, end: 20071119
  4. FERRUM [Concomitant]
     Dosage: TOTAL DAILY DOSE: 305 MG
     Route: 048
     Dates: end: 20071031
  5. ASCATE [Concomitant]
     Dosage: TOTAL DAILY DOSE: 900 MG
     Route: 048
     Dates: end: 20071031
  6. CORINAEL L [Concomitant]
     Dosage: TOTAL DAILY DOSE: 40 MG
     Route: 048
     Dates: end: 20071031
  7. FLUVASTATIN [Concomitant]
     Dosage: TOTAL DAILY DOSE: 30 MG
     Route: 048
     Dates: end: 20071031
  8. ALMARL [Concomitant]
     Dosage: TOTAL DAILY DOSE: 10 MG
     Route: 048
     Dates: end: 20071031
  9. VESICARE [Concomitant]
     Dosage: TOTAL DAILY DOSE: 5 MG
     Route: 048
     Dates: start: 20070320, end: 20071031

REACTIONS (2)
  - DISSEMINATED INTRAVASCULAR COAGULATION [None]
  - LIVER DISORDER [None]
